FAERS Safety Report 24772444 (Version 1)
Quarter: 2024Q4

REPORT INFORMATION
  Report Type: Report from Study
  Country: GB (occurrence: GB)
  Receive Date: 20241224
  Receipt Date: 20241224
  Transmission Date: 20250115
  Serious: Yes (Other)
  Sender: ABBVIE
  Company Number: GB-ABBVIE-6057241

PATIENT
  Age: 53 Year
  Sex: Male

DRUGS (1)
  1. RINVOQ [Suspect]
     Active Substance: UPADACITINIB
     Indication: Dermatitis atopic
     Route: 048

REACTIONS (9)
  - Inguinal hernia [Recovered/Resolved]
  - Eczema [Recovered/Resolved]
  - Vitamin D deficiency [Recovered/Resolved]
  - Fatigue [Unknown]
  - Blood cholesterol increased [Unknown]
  - Anxiety [Unknown]
  - Visual impairment [Recovered/Resolved]
  - Musculoskeletal disorder [Unknown]
  - Lipids increased [Unknown]

NARRATIVE: CASE EVENT DATE: 20220729
